FAERS Safety Report 22271518 (Version 1)
Quarter: 2023Q2

REPORT INFORMATION
  Report Type: Spontaneous
  Country: US (occurrence: US)
  Receive Date: 20230501
  Receipt Date: 20230501
  Transmission Date: 20230721
  Serious: No
  Sender: FDA-Public Use
  Company Number: US-ALKERMES INC.-ALK-2023-001800

PATIENT
  Age: 29 Year
  Sex: Male

DRUGS (1)
  1. VIVITROL [Suspect]
     Active Substance: NALTREXONE
     Indication: Alcoholism
     Dosage: 380 MILLIGRAM, QMO
     Route: 030

REACTIONS (7)
  - Wrong technique in device usage process [Recovered/Resolved]
  - Peripheral swelling [Unknown]
  - Gait disturbance [Unknown]
  - Injection site reaction [Unknown]
  - Injection site swelling [Unknown]
  - Injection site pain [Unknown]
  - Hyperhidrosis [Unknown]

NARRATIVE: CASE EVENT DATE: 20230424
